FAERS Safety Report 11401862 (Version 1)
Quarter: 2015Q3

REPORT INFORMATION
  Report Type: Spontaneous
  Country: US (occurrence: None)
  Receive Date: 20150820
  Receipt Date: 20150820
  Transmission Date: 20151125
  Serious: No
  Sender: FDA-Public Use
  Company Number: None

PATIENT
  Age: 52 Year
  Sex: Female

DRUGS (1)
  1. ENBREL [Suspect]
     Active Substance: ETANERCEPT
     Indication: RHEUMATOID ARTHRITIS
     Route: 058

REACTIONS (7)
  - Immune system disorder [None]
  - Nausea [None]
  - Vomiting [None]
  - Diarrhoea [None]
  - Infection [None]
  - Viral infection [None]
  - Asthenia [None]

NARRATIVE: CASE EVENT DATE: 20150511
